FAERS Safety Report 4526750-4 (Version None)
Quarter: 2004Q4

REPORT INFORMATION
  Report Type: 
  Country: None (occurrence: None)
  Receive Date: 20041213
  Receipt Date: 20041203
  Transmission Date: 20050328
  Serious: Yes (Hospitalization, Other)
  Sender: FDA-Public Use
  Company Number: KII-2004-0014175

PATIENT
  Age: 43 Year
  Sex: Male

DRUGS (2)
  1. OXYCODONE HCL [Suspect]
     Indication: DRUG USE FOR UNKNOWN INDICATION
     Dosage: ORAL
     Route: 048
  2. BENZODIAZEPINE DERIVATIVES [Suspect]
     Indication: NERVOUSNESS
     Dosage: ORAL
     Route: 048

REACTIONS (10)
  - BLOOD POTASSIUM DECREASED [None]
  - BODY TEMPERATURE FLUCTUATION [None]
  - COMA [None]
  - DRUG EFFECT DECREASED [None]
  - HYPOTENSION [None]
  - LABILE BLOOD PRESSURE [None]
  - MULTIPLE DRUG OVERDOSE [None]
  - PO2 DECREASED [None]
  - PUPILLARY LIGHT REFLEX TESTS ABNORMAL [None]
  - TREATMENT NONCOMPLIANCE [None]
